FAERS Safety Report 4314385-8 (Version None)
Quarter: 2004Q1

REPORT INFORMATION
  Report Type: 
  Country: None (occurrence: None)
  Receive Date: 20040309
  Receipt Date: 20031022
  Transmission Date: 20041129
  Serious: Yes (Other)
  Sender: FDA-Public Use
  Company Number: US-GLAXOSMITHKLINE-A0431460A

PATIENT
  Age: 31 Year
  Sex: Female
  Weight: 75 kg

DRUGS (20)
  1. PAXIL [Suspect]
     Indication: PANIC DISORDER
     Route: 048
     Dates: start: 19980422, end: 20020328
  2. KLONOPIN [Concomitant]
     Indication: ANXIETY
  3. VALIUM [Concomitant]
  4. XANAX [Concomitant]
  5. TRAZODONE HCL [Concomitant]
     Indication: SLEEP DISORDER
  6. AUGMENTIN [Concomitant]
     Indication: ANIMAL BITE
     Dates: start: 19981001
  7. VICODIN [Concomitant]
     Indication: ANIMAL BITE
  8. MS CONTIN [Concomitant]
  9. MORPHINE [Concomitant]
  10. BUSPAR [Concomitant]
     Dates: start: 19980825
  11. AMITRIPTYLINE HCL [Concomitant]
     Dates: start: 19981201
  12. METHADONE HCL [Concomitant]
     Dates: start: 19981201
  13. PROMETHAZINE [Concomitant]
     Indication: NAUSEA
  14. PROGESTERONE [Concomitant]
     Indication: OLIGOMENORRHOEA
  15. CARBAMAZEPINE [Concomitant]
  16. ECHINACEA [Concomitant]
  17. GARLIC [Concomitant]
  18. TYLENOL (CAPLET) [Concomitant]
  19. IBUPROFEN [Concomitant]
  20. MULTI-VITAMIN [Concomitant]

REACTIONS (32)
  - ABDOMINAL PAIN [None]
  - ABNORMAL BEHAVIOUR [None]
  - ANOREXIA [None]
  - BACK PAIN [None]
  - CHOLELITHIASIS [None]
  - CHROMATURIA [None]
  - DRUG WITHDRAWAL SYNDROME [None]
  - FATIGUE [None]
  - FIBROADENOMA OF BREAST [None]
  - GILBERT'S SYNDROME [None]
  - HAIR PLUCKING [None]
  - HEPATIC ENZYME INCREASED [None]
  - HEPATIC FAILURE [None]
  - HEPATIC FIBROSIS [None]
  - HEPATITIS ACUTE [None]
  - LACERATION [None]
  - LIVER DISORDER [None]
  - MUSCLE CRAMP [None]
  - NAUSEA [None]
  - OLIGOMENORRHOEA [None]
  - OTITIS EXTERNA [None]
  - PANIC ATTACK [None]
  - PLEURISY [None]
  - PYREXIA [None]
  - REFUSAL OF TREATMENT BY PATIENT [None]
  - SKIN DISCOLOURATION [None]
  - SOMNOLENCE [None]
  - SPUTUM DISCOLOURED [None]
  - TONIC CLONIC MOVEMENTS [None]
  - VOMITING [None]
  - WEIGHT DECREASED [None]
  - WEIGHT INCREASED [None]
